FAERS Safety Report 15421869 (Version 2)
Quarter: 2019Q3

REPORT INFORMATION
  Report Type: Spontaneous
  Country: US (occurrence: US)
  Receive Date: 20180924
  Receipt Date: 20190917
  Transmission Date: 20191004
  Serious: No
  Sender: FDA-Public Use
  Company Number: US-ALLERGAN-1837272US

PATIENT
  Age: 15 Year
  Sex: Female
  Weight: 63.49 kg

DRUGS (5)
  1. PRUNE FRUIT JUICE [Concomitant]
     Indication: CONSTIPATION
     Dosage: UNK, QD
  2. LINZESS [Suspect]
     Active Substance: LINACLOTIDE
     Indication: ABDOMINAL PAIN
  3. LINZESS [Suspect]
     Active Substance: LINACLOTIDE
     Indication: CONSTIPATION
     Dosage: 72 ?G, QD
     Route: 065
     Dates: start: 20180313
  4. MIRALAX [Concomitant]
     Active Substance: POLYETHYLENE GLYCOL 3350
     Indication: CONSTIPATION
     Dosage: UNK UNK, QD
  5. FIBER GUMMIES [Concomitant]
     Indication: CONSTIPATION
     Dosage: UNK, QD

REACTIONS (2)
  - Therapeutic response unexpected [Unknown]
  - Off label use [Unknown]
